FAERS Safety Report 20755707 (Version 1)
Quarter: 2022Q2

REPORT INFORMATION
  Report Type: Spontaneous
  Country: US (occurrence: US)
  Receive Date: 20220427
  Receipt Date: 20220427
  Transmission Date: 20220721
  Serious: Yes (Hospitalization, Other)
  Sender: FDA-Public Use
  Company Number: US-TAKEDA-2022TUS026514

PATIENT
  Sex: Male
  Weight: 78 kg

DRUGS (1)
  1. LIVTENCITY [Suspect]
     Active Substance: MARIBAVIR
     Indication: Cytomegalovirus infection
     Dosage: 200 MILLIGRAM, BID
     Route: 065
     Dates: start: 20220128

REACTIONS (3)
  - Cardiac disorder [Unknown]
  - Hepatic infection [Not Recovered/Not Resolved]
  - Cholecystitis infective [Not Recovered/Not Resolved]
